FAERS Safety Report 24891702 (Version 1)
Quarter: 2025Q1

REPORT INFORMATION
  Report Type: Spontaneous
  Country: JP (occurrence: JP)
  Receive Date: 20250127
  Receipt Date: 20250127
  Transmission Date: 20250408
  Serious: No
  Sender: JAZZ
  Company Number: JP-JAZZ PHARMACEUTICALS-2025-JP-002136

PATIENT

DRUGS (1)
  1. DEFITELIO [Suspect]
     Active Substance: DEFIBROTIDE SODIUM
     Indication: Venoocclusive liver disease
     Route: 042
     Dates: start: 20240214

REACTIONS (3)
  - Haemorrhage [Unknown]
  - Platelet count decreased [Unknown]
  - Faeces discoloured [Unknown]

NARRATIVE: CASE EVENT DATE: 20240219
